FAERS Safety Report 8574087-9 (Version None)
Quarter: 2012Q3

REPORT INFORMATION
  Report Type: 
  Country: None (occurrence: None)
  Receive Date: 20120806
  Receipt Date: 20120731
  Transmission Date: 20120928
  Serious: Yes (Hospitalization, Other)
  Sender: FDA-Public Use
  Company Number: PHHY2012GR066558

PATIENT
  Sex: Female
  Weight: 64 kg

DRUGS (1)
  1. GILENYA [Suspect]
     Indication: MULTIPLE SCLEROSIS
     Dosage: 0.5 MG, UNK
     Route: 048
     Dates: start: 20120622, end: 20120724

REACTIONS (5)
  - EPILEPSY [None]
  - PNEUMONIA ASPIRATION [None]
  - STATUS EPILEPTICUS [None]
  - COMPLEX PARTIAL SEIZURES [None]
  - CENTRAL NERVOUS SYSTEM LESION [None]
